FAERS Safety Report 6325817-8 (Version None)
Quarter: 2009Q3

REPORT INFORMATION
  Report Type: 
  Country: None (occurrence: None)
  Receive Date: 20090824
  Receipt Date: 20070614
  Transmission Date: 20100115
  Serious: No
  Sender: FDA-Public Use
  Company Number: US-ABBOTT-08P-163-0463764-00

PATIENT
  Sex: Female

DRUGS (2)
  1. NIASPAN [Suspect]
     Indication: DRUG USE FOR UNKNOWN INDICATION
     Dosage: TWO 1000MG TABLETS
  2. NIASPAN [Suspect]
     Dosage: TWO 500MG TABLETS

REACTIONS (4)
  - ACCIDENTAL OVERDOSE [None]
  - ARTHRALGIA [None]
  - DIARRHOEA [None]
  - NAUSEA [None]
